FAERS Safety Report 20077191 (Version 2)
Quarter: 2022Q1

REPORT INFORMATION
  Report Type: Spontaneous
  Country: US (occurrence: US)
  Receive Date: 20211116
  Receipt Date: 20220214
  Transmission Date: 20220423
  Serious: No
  Sender: FDA-Public Use
  Company Number: US-TG THERAPEUTICS INC.-TGT002199

PATIENT
  Sex: Male

DRUGS (3)
  1. UKONIQ [Suspect]
     Active Substance: UMBRALISIB TOSYLATE
     Indication: Marginal zone lymphoma
     Dosage: 800 MILLIGRAM, QD
     Route: 048
     Dates: start: 202105
  2. UKONIQ [Suspect]
     Active Substance: UMBRALISIB TOSYLATE
     Dosage: 600 MILLIGRAM, QD
     Route: 048
     Dates: start: 202105
  3. ELIQUIS [Suspect]
     Active Substance: APIXABAN
     Indication: Product used for unknown indication

REACTIONS (5)
  - Transient global amnesia [Unknown]
  - Nausea [Unknown]
  - Fatigue [Unknown]
  - Myalgia [Unknown]
  - Asthenia [Unknown]
